FAERS Safety Report 7550053-7 (Version None)
Quarter: 2011Q2

REPORT INFORMATION
  Report Type: 
  Country: None (occurrence: None)
  Receive Date: 20110525
  Receipt Date: 20110225
  Transmission Date: 20111010
  Serious: No
  Sender: FDA-Public Use
  Company Number: 324037

PATIENT
  Age: 51 Year
  Sex: Female

DRUGS (2)
  1. VICTOZA [Suspect]
     Indication: TYPE 2 DIABETES MELLITUS
     Dosage: 1.8 MG, QD, SUBCUTANEOUS
     Route: 058
     Dates: start: 20100601
  2. METFORMIN HCL [Concomitant]

REACTIONS (4)
  - WEIGHT DECREASED [None]
  - DYSGEUSIA [None]
  - DECREASED APPETITE [None]
  - ENERGY INCREASED [None]
